FAERS Safety Report 6296726-8 (Version None)
Quarter: 2009Q3

REPORT INFORMATION
  Report Type: 
  Country: None (occurrence: None)
  Receive Date: 20090804
  Receipt Date: 20090728
  Transmission Date: 20100115
  Serious: Yes (Other)
  Sender: FDA-Public Use
  Company Number: GB-TEVA-204270ISR

PATIENT
  Age: 75 Year
  Sex: Female
  Weight: 60 kg

DRUGS (3)
  1. WARFARIN SODIUM [Suspect]
     Indication: ATRIAL FIBRILLATION
     Route: 048
     Dates: start: 20081126
  2. OMEPRAZOLE [Suspect]
     Route: 048
     Dates: start: 20081126, end: 20090209
  3. AMIODARONE HYDROCHLORIDE [Suspect]
     Indication: ATRIAL FIBRILLATION
     Route: 048
     Dates: start: 20081211

REACTIONS (5)
  - BURNING SENSATION [None]
  - MALAISE [None]
  - PRURITUS [None]
  - RASH [None]
  - SYNCOPE [None]
